FAERS Safety Report 4740485-4 (Version None)
Quarter: 2005Q3

REPORT INFORMATION
  Report Type: 
  Country: None (occurrence: None)
  Receive Date: 20050809
  Receipt Date: 20050725
  Transmission Date: 20060218
  Serious: Yes (Hospitalization)
  Sender: FDA-Public Use
  Company Number: 863#3#2005-00011

PATIENT
  Age: 30 Year
  Sex: Male

DRUGS (4)
  1. IDROLAX (MACROGOL) [Suspect]
     Dosage: 1.30 G/DAY, ORAL
     Route: 048
     Dates: start: 20050506, end: 20050603
  2. AMITRIPTYLINE HYDROCHLORIDE [Suspect]
     Dosage: 20 DROPS (20MG) DAY, ORAL
     Route: 048
     Dates: start: 20050506, end: 20050603
  3. SPASFON (PHLOROGLUCINOL, TRIMETHYLPHLOROGLUCINOL) [Suspect]
     Dosage: 6 TAB/DAY, ORAL
     Route: 048
     Dates: start: 20050518, end: 20050603
  4. BROMAZEPAM (BROMAZEPAM) [Suspect]

REACTIONS (1)
  - NEUTROPENIA [None]
